FAERS Safety Report 14993581 (Version 1)
Quarter: 2018Q2

REPORT INFORMATION
  Report Type: Report from Study
  Country: US (occurrence: US)
  Receive Date: 20180611
  Receipt Date: 20180611
  Transmission Date: 20180711
  Serious: No
  Sender: FDA-Public Use
  Company Number: PHEH2018US022732

PATIENT
  Sex: Female
  Weight: 23.4 kg

DRUGS (1)
  1. OMNITROPE [Suspect]
     Active Substance: SOMATROPIN
     Indication: GROWTH HORMONE DEFICIENCY
     Dosage: 1.2 MG, QD
     Route: 058
     Dates: start: 20160710

REACTIONS (4)
  - Vomiting [Unknown]
  - Headache [Unknown]
  - Affect lability [Unknown]
  - Mood swings [Unknown]
